FAERS Safety Report 5341455-8 (Version None)
Quarter: 2007Q2

REPORT INFORMATION
  Report Type: 
  Country: None (occurrence: None)
  Receive Date: 20070601
  Receipt Date: 20070523
  Transmission Date: 20071010
  Serious: Yes (Other)
  Sender: FDA-Public Use
  Company Number: PHBS2007JP08730

PATIENT
  Age: 28 Year
  Sex: Male
  Weight: 44 kg

DRUGS (1)
  1. TEGRETOL [Suspect]
     Indication: LENNOX-GASTAUT SYNDROME
     Route: 048

REACTIONS (1)
  - COLITIS ULCERATIVE [None]
